FAERS Safety Report 10970430 (Version 1)
Quarter: 2015Q1

REPORT INFORMATION
  Report Type: Spontaneous
  Country: IT (occurrence: IT)
  Receive Date: 20150331
  Receipt Date: 20150331
  Transmission Date: 20150721
  Serious: Yes (Hospitalization)
  Sender: FDA-Public Use
  Company Number: IT-ASTRAZENECA-2015SE28227

PATIENT
  Age: 31294 Day
  Sex: Male

DRUGS (15)
  1. FLUIFORT [Concomitant]
  2. MOVICOL [Concomitant]
     Active Substance: POLYETHYLENE GLYCOL 3350\POTASSIUM CHLORIDE\SODIUM BICARBONATE\SODIUM CHLORIDE
  3. VISTAGAN [Concomitant]
     Dosage: 5MG/ ML EYEWASH, SOLUTION
  4. ESOPRAL [Concomitant]
     Active Substance: ESOMEPRAZOLE MAGNESIUM
     Route: 048
  5. EN [Suspect]
     Active Substance: DELORAZEPAM
     Dosage: 1MG/ ML ORAL DROPS, SOLUTION, 8 GTT DAILY
     Route: 048
     Dates: start: 20110101, end: 20150106
  6. CLEXANE [Concomitant]
     Active Substance: ENOXAPARIN SODIUM
  7. LYRICA [Suspect]
     Active Substance: PREGABALIN
     Route: 048
     Dates: start: 20110101, end: 20150106
  8. LUVION [Concomitant]
     Active Substance: CANRENONE
  9. SEROQUEL [Suspect]
     Active Substance: QUETIAPINE FUMARATE
     Indication: PSYCHOMOTOR HYPERACTIVITY
     Route: 048
  10. LASIX [Concomitant]
     Active Substance: FUROSEMIDE
     Route: 048
  11. CONTRAMAL [Concomitant]
     Active Substance: TRAMADOL HYDROCHLORIDE
     Dosage: 100MG/ ML ORAL DROPS, SOLUTION
     Route: 048
  12. TOTALIP [Concomitant]
     Active Substance: ATORVASTATIN
  13. CADIOASPIRIN [Concomitant]
  14. HUMALOG [Concomitant]
     Active Substance: INSULIN LISPRO
  15. SEROQUEL [Suspect]
     Active Substance: QUETIAPINE FUMARATE
     Indication: PSYCHOMOTOR HYPERACTIVITY
     Route: 048
     Dates: start: 20110101, end: 20150106

REACTIONS (4)
  - Altered state of consciousness [Recovered/Resolved]
  - Dehydration [Recovered/Resolved]
  - Off label use [Unknown]
  - Sopor [Recovered/Resolved]

NARRATIVE: CASE EVENT DATE: 20110101
